FAERS Safety Report 18088570 (Version 1)
Quarter: 2020Q3

REPORT INFORMATION
  Report Type: Spontaneous
  Country: GB (occurrence: GB)
  Receive Date: 20200729
  Receipt Date: 20200729
  Transmission Date: 20201103
  Serious: Yes (Other)
  Sender: FDA-Public Use
  Company Number: GB-MYLANLABS-2020M1067382

PATIENT
  Age: 94 Year
  Sex: Female
  Weight: 41 kg

DRUGS (10)
  1. MEMANTINE. [Suspect]
     Active Substance: MEMANTINE
     Indication: PRODUCT USED FOR UNKNOWN INDICATION
     Dosage: 20 MILLIGRAM, QD (TAKE ONE DAILY (CAN BE DISSOLVED ON TONGUE, OR ...
     Route: 065
     Dates: start: 20200407
  2. FLUOROURACIL. [Concomitant]
     Active Substance: FLUOROURACIL
     Dosage: 1 DOSAGE FORM, QD FOR 3?4 WEEKS
     Dates: start: 20200414, end: 20200512
  3. LAXIDO [Concomitant]
     Active Substance: POLYETHYLENE GLYCOL 3350\POTASSIUM CHLORIDE\SODIUM BICARBONATE\SODIUM CHLORIDE
     Dosage: 1 DOSAGE FORM, QD (INCREASING AS REQUIRED)
     Dates: start: 20200522
  4. CETIRIZINE [Concomitant]
     Active Substance: CETIRIZINE HYDROCHLORIDE
     Indication: PRURITUS
     Dosage: 10 MILLILITER, QD (NIGHT)
     Dates: start: 20200407, end: 20200630
  5. FLUCLOXACILLIN [Concomitant]
     Active Substance: FLUCLOXACILLIN
     Dosage: 40 MILLILITER, QD
     Dates: start: 20200708
  6. LATANOPROST. [Concomitant]
     Active Substance: LATANOPROST
     Dosage: 2 GTT DROPS, QD (BOTH EYES)
     Dates: start: 20190108
  7. FEXOFENADINE [Concomitant]
     Active Substance: FEXOFENADINE HYDROCHLORIDE
     Dosage: 1 DOSAGE FORM, QD
     Dates: start: 20200630
  8. BETAMETHASONE VALERATE. [Concomitant]
     Active Substance: BETAMETHASONE VALERATE
     Dosage: 2 DOSAGE FORM, QD
     Dates: start: 20180322, end: 20200630
  9. DERMOL                             /01330701/ [Concomitant]
     Dosage: USE AS A WASH
     Dates: start: 20180117, end: 20200630
  10. TRAZODONE [Concomitant]
     Active Substance: TRAZODONE HYDROCHLORIDE
     Dosage: 10 MILLILITER, QD AT BEDTIME OR SPLIT BETWEEN
     Dates: start: 20200407

REACTIONS (3)
  - Product substitution issue [Unknown]
  - Hyperkalaemia [Unknown]
  - Glomerular filtration rate decreased [Unknown]

NARRATIVE: CASE EVENT DATE: 20200708
